FAERS Safety Report 4596085-2 (Version None)
Quarter: 2005Q1

REPORT INFORMATION
  Report Type: 
  Country: None (occurrence: None)
  Receive Date: 20050225
  Receipt Date: 20050218
  Transmission Date: 20050727
  Serious: Yes (Hospitalization)
  Sender: FDA-Public Use
  Company Number: 2005-125407-NL

PATIENT
  Age: 60 Year
  Sex: Female

DRUGS (8)
  1. MIRTAZAPINE [Suspect]
     Dosage: 15 MG/30 MG/45 MG
     Dates: start: 20031113, end: 20031113
  2. MIRTAZAPINE [Suspect]
     Dosage: 15 MG/30 MG/45 MG
     Dates: start: 20031114, end: 20031125
  3. MIRTAZAPINE [Suspect]
     Dosage: 15 MG/30 MG/45 MG
     Dates: start: 20031126, end: 20031229
  4. MIRTAZAPINE [Suspect]
     Dosage: 15 MG/30 MG/45 MG
  5. MIRTAZAPINE [Suspect]
     Dosage: 15 MG/30 MG/45 MG
  6. CARBAMAZEPINE [Concomitant]
  7. ZOLPIDEM TARTRATE [Concomitant]
  8. RISPERIDONE [Concomitant]

REACTIONS (9)
  - AMNESIA [None]
  - APHASIA [None]
  - BLOOD CREATINE PHOSPHOKINASE INCREASED [None]
  - COGNITIVE DISORDER [None]
  - CONDITION AGGRAVATED [None]
  - DEMENTIA [None]
  - DISORIENTATION [None]
  - HYPONATRAEMIA [None]
  - NAUSEA [None]
